FAERS Safety Report 5474750-2 (Version None)
Quarter: 2007Q4

REPORT INFORMATION
  Report Type: 
  Country: None (occurrence: None)
  Receive Date: 20071002
  Receipt Date: 20070927
  Transmission Date: 20080405
  Serious: Yes (Other)
  Sender: FDA-Public Use
  Company Number: A0678438A

PATIENT
  Age: 76 Year
  Sex: Male

DRUGS (3)
  1. ADVAIR DISKUS 100/50 [Suspect]
     Indication: CHRONIC OBSTRUCTIVE PULMONARY DISEASE
     Dosage: 1PUFF SINGLE DOSE
     Route: 055
     Dates: start: 20070831, end: 20070831
  2. ALBUTEROL [Concomitant]
  3. SPIRIVA [Concomitant]

REACTIONS (4)
  - ADVERSE EVENT [None]
  - CATARACT [None]
  - DYSPHONIA [None]
  - RESPIRATORY RATE INCREASED [None]
